FAERS Safety Report 4338285-2 (Version None)
Quarter: 2004Q2

REPORT INFORMATION
  Report Type: 
  Country: None (occurrence: None)
  Receive Date: 20040414
  Receipt Date: 20040402
  Transmission Date: 20050107
  Serious: Yes (Life-Threatening)
  Sender: FDA-Public Use
  Company Number: GB-BRISTOL-MYERS SQUIBB COMPANY-12553285

PATIENT
  Age: 72 Year
  Sex: Female

DRUGS (5)
  1. METFORMIN HYDROCHLORIDE [Suspect]
     Indication: DIABETES MELLITUS NON-INSULIN-DEPENDENT
     Route: 048
     Dates: start: 20040203, end: 20040319
  2. DIAZEPAM [Concomitant]
     Indication: NERVOUSNESS
     Dates: start: 19971101
  3. LANSOPRAZOLE [Concomitant]
     Indication: GASTRITIS
     Dates: start: 20010111
  4. LOSARTAN [Concomitant]
     Indication: HYPERTENSION
     Dates: start: 20040106
  5. SIMVASTATIN [Concomitant]
     Indication: HYPERCHOLESTEROLAEMIA
     Dates: start: 20040203

REACTIONS (2)
  - DECREASED APPETITE [None]
  - DEPRESSED MOOD [None]
